FAERS Safety Report 24420714 (Version 1)
Quarter: 2024Q4

REPORT INFORMATION
  Report Type: Spontaneous
  Country: US (occurrence: US)
  Receive Date: 20241010
  Receipt Date: 20241010
  Transmission Date: 20250114
  Serious: Yes (Hospitalization, Other)
  Sender: ALEMBIC
  Company Number: US-ALEMBIC PHARMACUETICALS LIMITED-2024SCAL001442

PATIENT

DRUGS (2)
  1. QUETIAPINE FUMARATE [Suspect]
     Active Substance: QUETIAPINE FUMARATE
     Indication: Product used for unknown indication
     Dosage: UNK
     Route: 065
  2. FAMOTIDINE [Suspect]
     Active Substance: FAMOTIDINE
     Indication: Product used for unknown indication
     Dosage: UNK
     Route: 065

REACTIONS (13)
  - Salmonella bacteraemia [Unknown]
  - Empyema [Unknown]
  - Agranulocytosis [Unknown]
  - Neutropenia [Unknown]
  - Leukopenia [Unknown]
  - Tachypnoea [Unknown]
  - Hypoxia [Unknown]
  - Pneumonia [Unknown]
  - Delirium [Unknown]
  - Pyrexia [Unknown]
  - Dyspnoea [Unknown]
  - Pleural effusion [Unknown]
  - Productive cough [Unknown]
